FAERS Safety Report 7509850-6 (Version None)
Quarter: 2011Q2

REPORT INFORMATION
  Report Type: 
  Country: None (occurrence: None)
  Receive Date: 20110519
  Receipt Date: 20110505
  Transmission Date: 20111010
  Serious: Yes (Hospitalization)
  Sender: FDA-Public Use
  Company Number: 2011MA005449

PATIENT
  Age: 68 Year
  Sex: Male

DRUGS (3)
  1. LIDOCAINE [Suspect]
     Indication: INFILTRATION ANAESTHESIA
  2. HYALURONIDASE [Concomitant]
  3. BUPIVACAINE HCL [Concomitant]

REACTIONS (2)
  - ANAESTHETIC COMPLICATION NEUROLOGICAL [None]
  - UNRESPONSIVE TO STIMULI [None]
